FAERS Safety Report 20830376 (Version 1)
Quarter: 2022Q2

REPORT INFORMATION
  Report Type: Spontaneous
  Country: US (occurrence: US)
  Receive Date: 20220514
  Receipt Date: 20220514
  Transmission Date: 20220721
  Serious: No
  Sender: FDA-Public Use
  Company Number: US-TAKEDA-2022TUS030947

PATIENT
  Age: 25 Year
  Sex: Male

DRUGS (5)
  1. MOTEGRITY [Suspect]
     Active Substance: PRUCALOPRIDE SUCCINATE
     Indication: Tethered cord syndrome
     Dosage: UNK
     Route: 065
     Dates: start: 202103
  2. MOTEGRITY [Suspect]
     Active Substance: PRUCALOPRIDE SUCCINATE
     Dosage: 2 MILLIGRAM, QD
     Route: 065
  3. MOTEGRITY [Suspect]
     Active Substance: PRUCALOPRIDE SUCCINATE
     Dosage: 1 MILLIGRAM, QD
     Route: 065
  4. MOTEGRITY [Suspect]
     Active Substance: PRUCALOPRIDE SUCCINATE
     Dosage: UNK
     Route: 065
     Dates: start: 202110
  5. VILAZODONE [Concomitant]
     Active Substance: VILAZODONE
     Dosage: UNK
     Route: 065

REACTIONS (6)
  - Incorrect dose administered [Unknown]
  - Drug ineffective [Unknown]
  - Adverse drug reaction [Unknown]
  - Off label use [Unknown]
  - Inappropriate schedule of product administration [Unknown]
  - Surgery [Unknown]

NARRATIVE: CASE EVENT DATE: 20210301
